FAERS Safety Report 9118354 (Version 1)
Quarter: 2013Q1

REPORT INFORMATION
  Report Type: Spontaneous
  Country: US (occurrence: None)
  Receive Date: 20130221
  Receipt Date: 20130221
  Transmission Date: 20140127
  Serious: Yes (Hospitalization)
  Sender: FDA-Public Use
  Company Number: None

PATIENT
  Sex: Male
  Weight: 96.2 kg

DRUGS (1)
  1. ALFA 2 INTERFERON 2B (INTRON-A) [Suspect]
     Indication: HYPERTRIGLYCERIDAEMIA
     Dates: start: 20130128, end: 20130204

REACTIONS (2)
  - Haemolysis [None]
  - Blood triglycerides increased [None]
